FAERS Safety Report 7542037-X (Version None)
Quarter: 2011Q2

REPORT INFORMATION
  Report Type: 
  Country: None (occurrence: None)
  Receive Date: 20110524
  Receipt Date: 20110311
  Transmission Date: 20111010
  Serious: No
  Sender: FDA-Public Use
  Company Number: 029122

PATIENT
  Sex: Female
  Weight: 65.8 kg

DRUGS (5)
  1. CIMZIA [Suspect]
     Indication: CROHN'S DISEASE
     Dosage: (SUBCUTANEOUS), (2 SHOTS SUBCUTANEOUS)
     Route: 058
     Dates: start: 20091201
  2. CIMZIA [Suspect]
     Indication: CROHN'S DISEASE
     Dosage: (SUBCUTANEOUS), (2 SHOTS SUBCUTANEOUS)
     Route: 058
     Dates: start: 20100801, end: 20110101
  3. PENTASA [Concomitant]
  4. CYMBALTA [Concomitant]
  5. AMBIEN [Concomitant]

REACTIONS (1)
  - BRONCHITIS [None]
